FAERS Safety Report 6268831-3 (Version None)
Quarter: 2009Q3

REPORT INFORMATION
  Report Type: 
  Country: None (occurrence: None)
  Receive Date: 20090715
  Receipt Date: 20090706
  Transmission Date: 20100115
  Serious: No
  Sender: FDA-Public Use
  Company Number: NL-AVENTIS-200916727GDDC

PATIENT
  Age: 27 Year
  Sex: Female

DRUGS (1)
  1. ARAVA [Suspect]
     Indication: RHEUMATOID ARTHRITIS
     Dosage: DOSE: UNK
     Dates: start: 20060101, end: 20090701

REACTIONS (1)
  - DRUG EXPOSURE DURING PREGNANCY [None]
